FAERS Safety Report 23223154 (Version 1)
Quarter: 2023Q4

REPORT INFORMATION
  Report Type: Spontaneous
  Country: PT (occurrence: PT)
  Receive Date: 20231123
  Receipt Date: 20231123
  Transmission Date: 20240109
  Serious: Yes (Other)
  Sender: FDA-Public Use
  Company Number: PT-009507513-2311PRT008118

PATIENT
  Age: 55 Year
  Sex: Male

DRUGS (1)
  1. PEMBROLIZUMAB [Suspect]
     Active Substance: PEMBROLIZUMAB
     Indication: Lung adenocarcinoma
     Dosage: 200MG 21/21 DAYS
     Dates: start: 20220524

REACTIONS (6)
  - Adrenalectomy [Unknown]
  - Thrombosis [Unknown]
  - Vascular stenosis [Unknown]
  - Aortic valve sclerosis [Unknown]
  - Fibrosis [Unknown]
  - Neovascularisation [Unknown]

NARRATIVE: CASE EVENT DATE: 20230606
